FAERS Safety Report 6771235-8 (Version None)
Quarter: 2010Q2

REPORT INFORMATION
  Report Type: 
  Country: None (occurrence: None)
  Receive Date: 20100616
  Receipt Date: 20100330
  Transmission Date: 20101027
  Serious: Yes (Other)
  Sender: FDA-Public Use
  Company Number: US-ASTRAZENECA-2006UW07728

PATIENT
  Age: 20108 Day
  Sex: Male
  Weight: 90.7 kg

DRUGS (17)
  1. SEROQUEL [Suspect]
     Indication: DEPRESSION
     Route: 048
     Dates: start: 20010401, end: 20051101
  2. SEROQUEL [Suspect]
     Indication: INSOMNIA
     Route: 048
     Dates: start: 20010401, end: 20051101
  3. SEROQUEL [Suspect]
     Dosage: STRENGTH 25-100 MG
     Route: 048
     Dates: start: 20010523
  4. SEROQUEL [Suspect]
     Dosage: STRENGTH 25-100 MG
     Route: 048
     Dates: start: 20010523
  5. SEROQUEL [Suspect]
     Route: 048
     Dates: start: 20061101, end: 20061201
  6. SEROQUEL [Suspect]
     Route: 048
     Dates: start: 20061101, end: 20061201
  7. RISPERDAL [Suspect]
  8. GEODON [Concomitant]
     Dates: start: 20050101
  9. PERCOCET [Concomitant]
     Indication: PAIN
     Dosage: 10/325 MG
     Dates: start: 20010523
  10. VALIUM [Concomitant]
     Dates: start: 20010523
  11. DURAGESIC-100 [Concomitant]
     Dosage: STRENGTH 100 MCG
     Dates: start: 20060823
  12. OXYCONTIN [Concomitant]
     Dates: start: 20060823
  13. MS CONTIN [Concomitant]
     Dates: start: 20060823
  14. SERZONE [Concomitant]
     Indication: ANXIETY
     Dates: start: 20010523
  15. SERZONE [Concomitant]
     Indication: DEPRESSION
     Dates: start: 20010523
  16. LISINOPRIL [Concomitant]
     Dates: start: 20061030
  17. BUPROPION HCL [Concomitant]
     Dosage: 150 MG 1 TABLET EVERY MORNING AND 1 TABLET AT 3 PM
     Dates: start: 20061114

REACTIONS (8)
  - ANXIETY [None]
  - ARTHRALGIA [None]
  - DIABETES MELLITUS [None]
  - DIABETIC NEUROPATHY [None]
  - DISEASE COMPLICATION [None]
  - ECONOMIC PROBLEM [None]
  - PAIN [None]
  - TYPE 2 DIABETES MELLITUS [None]
